FAERS Safety Report 5227885-3 (Version None)
Quarter: 2007Q1

REPORT INFORMATION
  Report Type: 
  Country: None (occurrence: None)
  Receive Date: 20070202
  Receipt Date: 20070122
  Transmission Date: 20070707
  Serious: Yes (Hospitalization)
  Sender: FDA-Public Use
  Company Number: PL-PFIZER INC-2006152167

PATIENT
  Sex: Male
  Weight: 81 kg

DRUGS (9)
  1. SU-011,248 [Suspect]
     Indication: METASTATIC RENAL CELL CARCINOMA
     Route: 048
  2. HEPA-MERZ [Concomitant]
     Route: 042
     Dates: start: 20061030, end: 20061108
  3. OMEPRAZOLE [Concomitant]
     Route: 048
     Dates: start: 20060101
  4. FUROSEMIDE [Concomitant]
     Route: 048
     Dates: start: 20060101
  5. LOSARTAN POTASSIUM [Concomitant]
     Route: 048
     Dates: start: 20060101
  6. NITRENDIPINE [Concomitant]
     Route: 048
     Dates: start: 20060101
  7. KALIPOZ [Concomitant]
     Route: 048
     Dates: start: 20060101
  8. MILURIT [Concomitant]
     Route: 048
     Dates: start: 20060101
  9. ATENOLOL [Concomitant]
     Route: 048
     Dates: start: 20060101

REACTIONS (3)
  - ABDOMINAL PAIN [None]
  - ALANINE AMINOTRANSFERASE INCREASED [None]
  - ASPARTATE AMINOTRANSFERASE INCREASED [None]
